FAERS Safety Report 7587625-X (Version None)
Quarter: 2011Q3

REPORT INFORMATION
  Report Type: 
  Country: None (occurrence: None)
  Receive Date: 20110704
  Receipt Date: 20110624
  Transmission Date: 20111222
  Serious: Yes (Other)
  Sender: FDA-Public Use
  Company Number: PHFR2011GB03914

PATIENT
  Age: 32 Year
  Sex: Male

DRUGS (1)
  1. TEGRETOL [Suspect]
     Dates: start: 19930101

REACTIONS (1)
  - GYNAECOMASTIA [None]
